FAERS Safety Report 10009774 (Version 1)
Quarter: 2014Q1

REPORT INFORMATION
  Report Type: Spontaneous
  Country: US (occurrence: US)
  Receive Date: 20140312
  Receipt Date: 20140312
  Transmission Date: 20141002
  Serious: No
  Sender: FDA-Public Use
  Company Number: US-INCYTE CORPORATION-2013IN000017

PATIENT
  Age: 55 Year
  Sex: Male

DRUGS (4)
  1. JAKAFI [Suspect]
     Indication: MYELOFIBROSIS
     Dosage: 10 MG, BID
     Route: 048
     Dates: start: 2012, end: 20121229
  2. FLOLAN [Concomitant]
  3. LASIX [Concomitant]
  4. COLCRYS [Concomitant]

REACTIONS (2)
  - Pyrexia [Unknown]
  - Platelet count decreased [Unknown]
